FAERS Safety Report 18281787 (Version 1)
Quarter: 2020Q3

REPORT INFORMATION
  Report Type: Spontaneous
  Country: US (occurrence: US)
  Receive Date: 20200918
  Receipt Date: 20200918
  Transmission Date: 20201103
  Serious: Yes (Disabling)
  Sender: FDA-Public Use
  Company Number: None

PATIENT
  Age: 64 Year
  Sex: Male
  Weight: 143.1 kg

DRUGS (9)
  1. JANUVIA [Concomitant]
     Active Substance: SITAGLIPTIN PHOSPHATE
  2. ATORVASTATIN [Suspect]
     Active Substance: ATORVASTATIN
     Indication: BLOOD CHOLESTEROL INCREASED
     Route: 048
     Dates: start: 20200630, end: 20200918
  3. LISINOPRIL. [Concomitant]
     Active Substance: LISINOPRIL
  4. DILTIAZEM. [Concomitant]
     Active Substance: DILTIAZEM
  5. XARELTO [Concomitant]
     Active Substance: RIVAROXABAN
  6. EPIRIDE [Concomitant]
  7. VALACYCLOVIR HCL [Concomitant]
     Active Substance: VALACYCLOVIR HYDROCHLORIDE
  8. TIZANIDINE. [Concomitant]
     Active Substance: TIZANIDINE
  9. GLIM [Concomitant]

REACTIONS (4)
  - Myalgia [None]
  - Pain in extremity [None]
  - Muscle injury [None]
  - Gait disturbance [None]

NARRATIVE: CASE EVENT DATE: 20200719
